FAERS Safety Report 8488548-4 (Version None)
Quarter: 2012Q3

REPORT INFORMATION
  Report Type: 
  Country: None (occurrence: None)
  Receive Date: 20120705
  Receipt Date: 20120702
  Transmission Date: 20120928
  Serious: Yes (Hospitalization, Other)
  Sender: FDA-Public Use
  Company Number: US-PFIZER INC-2012158555

PATIENT
  Sex: Female
  Weight: 63.492 kg

DRUGS (6)
  1. KLONOPIN [Concomitant]
     Indication: PANIC ATTACK
  2. LAMICTAL [Concomitant]
     Dosage: 100MG DAILY
  3. CHANTIX [Suspect]
     Indication: SMOKING CESSATION THERAPY
     Dosage: UNK
     Dates: start: 20120301, end: 20120501
  4. PROZAC [Concomitant]
     Indication: DEPRESSION
     Dosage: 20 MG, 4X/DAY
  5. KLONOPIN [Concomitant]
     Indication: ANXIETY
     Dosage: 2 MG, 2X/DAY
  6. ZOLOFT [Concomitant]
     Indication: AFFECTIVE DISORDER
     Dosage: 100MG DAILY

REACTIONS (3)
  - RESPIRATORY TRACT INFECTION [None]
  - URINARY TRACT INFECTION [None]
  - TOBACCO USER [None]
